FAERS Safety Report 24209149 (Version 1)
Quarter: 2024Q3

REPORT INFORMATION
  Report Type: Spontaneous
  Country: US (occurrence: US)
  Receive Date: 20240814
  Receipt Date: 20240814
  Transmission Date: 20241016
  Serious: No
  Sender: TAKEDA
  Company Number: US-TAKEDA-2024TUS081051

PATIENT

DRUGS (1)
  1. VYVANSE [Suspect]
     Active Substance: LISDEXAMFETAMINE DIMESYLATE
     Indication: Depression
     Dosage: 40 MILLIGRAM
     Route: 065

REACTIONS (3)
  - Insurance issue [Unknown]
  - Off label use [Unknown]
  - Drug effective for unapproved indication [Unknown]
